FAERS Safety Report 23530771 (Version 2)
Quarter: 2024Q2

REPORT INFORMATION
  Report Type: Spontaneous
  Country: ES (occurrence: ES)
  Receive Date: 20240216
  Receipt Date: 20240404
  Transmission Date: 20240716
  Serious: Yes (Death, Life-Threatening, Hospitalization, Other)
  Sender: FDA-Public Use
  Company Number: ES-AMGEN-ESPSP2024030174

PATIENT

DRUGS (5)
  1. FILGRASTIM [Suspect]
     Active Substance: FILGRASTIM
     Indication: Prophylaxis
     Dosage: 300 MICROGRAM, Q2WK, ON DAYS 3-7,  FOR UP TO 4 CYCLES (8 WEEKS)
     Route: 058
  2. METHOTREXATE [Concomitant]
     Active Substance: METHOTREXATE
     Indication: Bladder cancer
     Dosage: 30 MILLIGRAM/SQ. METER, Q2WK, ON DAY 01, FOR UP TO 4 CYCLES (8 WEEKS)
     Route: 065
  3. VINBLASTINE [Concomitant]
     Active Substance: VINBLASTINE
     Indication: Bladder cancer
     Dosage: 3 MILLIGRAM/SQ. METER, Q2WK, ON DAY 02, FOR UP TO 4 CYCLES (8 WEEKS)
     Route: 065
  4. DOXORUBICIN [Concomitant]
     Active Substance: DOXORUBICIN
     Indication: Bladder cancer
     Dosage: 30 MILLIGRAM/SQ. METER, Q2WK, ON DAY 02, FOR UP TO 4 CYCLES (8 WEEKS)
     Route: 065
  5. CISPLATIN [Concomitant]
     Active Substance: CISPLATIN
     Indication: Bladder cancer
     Dosage: 70 MILLIGRAM/SQ. METER, Q2WK, ON DAY 02, FOR UP TO 4 CYCLES (8 WEEKS)
     Route: 065

REACTIONS (17)
  - Death [Fatal]
  - Neutropenia [Unknown]
  - Stomatitis [Unknown]
  - Adverse event [Unknown]
  - Febrile neutropenia [Unknown]
  - Bladder cancer [Unknown]
  - Neurotoxicity [Unknown]
  - Cardiac disorder [Unknown]
  - Genitourinary symptom [Unknown]
  - Gastrointestinal procedural complication [Unknown]
  - Postoperative thrombosis [Unknown]
  - Post procedural haemorrhage [Unknown]
  - Post procedural infection [Unknown]
  - Anaemia postoperative [Unknown]
  - Asthenia [Unknown]
  - Nausea [Unknown]
  - Vomiting [Unknown]
